FAERS Safety Report 26065748 (Version 2)
Quarter: 2025Q4

REPORT INFORMATION
  Report Type: Spontaneous
  Country: CA (occurrence: CA)
  Receive Date: 20251119
  Receipt Date: 20251231
  Transmission Date: 20260118
  Serious: Yes (Death, Hospitalization, Other)
  Sender: MERCK SHARP & DOHME LLC
  Company Number: CA-AstrazenecaRSG-1001-D7632C00001(Prod)000003

PATIENT
  Age: 77 Year
  Sex: Male
  Weight: 77 kg

DRUGS (37)
  1. PEMBROLIZUMAB [Suspect]
     Active Substance: PEMBROLIZUMAB
     Indication: Non-small cell lung cancer
     Dosage: 200 MILLIGRAM
     Route: 065
     Dates: start: 20250724, end: 20250724
  2. PEMBROLIZUMAB [Suspect]
     Active Substance: PEMBROLIZUMAB
     Indication: Non-small cell lung cancer
     Dosage: 200 MILLIGRAM
     Route: 065
     Dates: start: 20250814, end: 20250814
  3. PEMBROLIZUMAB [Suspect]
     Active Substance: PEMBROLIZUMAB
     Indication: Non-small cell lung cancer
     Dosage: 200 MILLIGRAM
     Route: 065
     Dates: start: 20250703, end: 20250703
  4. PEMBROLIZUMAB [Suspect]
     Active Substance: PEMBROLIZUMAB
     Indication: Non-small cell lung cancer
     Dosage: 200 MILLIGRAM
     Route: 065
     Dates: start: 20250904, end: 20250904
  5. ALBUTEROL SULFATE [Concomitant]
     Active Substance: ALBUTEROL SULFATE
     Indication: Dyspnoea
     Dosage: 100.0 OTHER 100 MCG/PUFF OTHER
     Route: 055
     Dates: start: 202411
  6. METOPROLOL TARTRATE [Concomitant]
     Active Substance: METOPROLOL TARTRATE
     Indication: Coronary artery disease
     Dosage: 25 MILLIGRAM, QD
     Route: 048
     Dates: start: 20241029
  7. METOPROLOL TARTRATE [Concomitant]
     Active Substance: METOPROLOL TARTRATE
     Indication: Coronary artery disease
     Dosage: 12.5 MILLIGRAM, QD
     Route: 048
     Dates: start: 202506
  8. ATORVASTATIN [ATORVASTATIN CALCIUM PROPYLENE GLYCOL SOLVATE] [Concomitant]
     Indication: Hyperlipidaemia
     Dosage: 80 MILLIGRAM, QD
     Route: 048
     Dates: start: 2005, end: 202507
  9. ATORVASTATIN [ATORVASTATIN CALCIUM PROPYLENE GLYCOL SOLVATE] [Concomitant]
     Indication: Hyperlipidaemia
     Dosage: 80 MG, ONE TIME PER WEEK
     Route: 048
     Dates: start: 202507
  10. TAMSULOSIN HYDROCHLORIDE [Concomitant]
     Active Substance: TAMSULOSIN HYDROCHLORIDE
     Indication: Pollakiuria
     Dosage: 0.4 MILLIGRAM,OTHER
     Route: 048
     Dates: start: 20250703
  11. POLYETHYLENE GLYCOL 3350 [Concomitant]
     Active Substance: POLYETHYLENE GLYCOL 3350
     Indication: Constipation prophylaxis
     Dosage: 17 GRAM,OTHER
     Route: 048
     Dates: start: 20250916, end: 20251102
  12. TYLENOL [Concomitant]
     Active Substance: ACETAMINOPHEN
     Indication: Arthralgia
     Dosage: 500 UNK, ONCE EVERY 4HR
     Route: 048
     Dates: start: 2023
  13. HYDROMORPHONE HYDROCHLORIDE [Concomitant]
     Active Substance: HYDROMORPHONE HYDROCHLORIDE
     Indication: Pain
     Dosage: 1 MILLIGRAM, OTHER
     Route: 050
     Dates: start: 20250912, end: 20251102
  14. HYDROMORPHONE HYDROCHLORIDE [Concomitant]
     Active Substance: HYDROMORPHONE HYDROCHLORIDE
     Indication: Pain
     Dosage: 12 MILLIGRAM, OTHER
     Route: 048
     Dates: start: 20250923
  15. HYDROMORPHONE HYDROCHLORIDE [Concomitant]
     Active Substance: HYDROMORPHONE HYDROCHLORIDE
     Indication: Pain
     Dosage: 6 MILLIGRAM, OTHER
     Route: 050
     Dates: start: 20250912, end: 20250923
  16. DEXAMETHASONE [Concomitant]
     Active Substance: DEXAMETHASONE
     Indication: Pain
     Dosage: 8 MILLIGRAM, QD
     Route: 048
     Dates: start: 20250916
  17. ASPIRIN [Concomitant]
     Active Substance: ASPIRIN
     Indication: Hyperlipidaemia
     Dosage: 81 MG, QD
     Route: 048
     Dates: start: 2005
  18. LEVOTHYROXINE SODIUM [Concomitant]
     Active Substance: LEVOTHYROXINE SODIUM
     Indication: Hypothyroidism
     Dosage: 88.0 OTHER MCG
     Route: 048
     Dates: start: 1967
  19. EZETIMIBE [Concomitant]
     Active Substance: EZETIMIBE
     Indication: Hyperlipidaemia
     Dosage: 10 MG, QOD
     Route: 048
     Dates: start: 20240402
  20. SENNOSIDES [Concomitant]
     Active Substance: SENNOSIDES
     Indication: Constipation prophylaxis
     Dosage: 24 MILLIGRAM
     Route: 048
     Dates: start: 20250916, end: 20251102
  21. SINUTAB SINUS [PARACETAMOL;PSEUDOEPHEDRINE HYDROCHLORIDE] [Concomitant]
     Indication: Hypersensitivity
     Dosage: 1, DAILY
     Route: 048
     Dates: start: 20250717, end: 20250719
  22. ENOXAPARIN SODIUM [Concomitant]
     Active Substance: ENOXAPARIN SODIUM
     Indication: Embolism venous
     Dosage: 40 MILLIGRAM, QD
     Route: 058
     Dates: start: 20250916, end: 20250918
  23. ENOXAPARIN SODIUM [Concomitant]
     Active Substance: ENOXAPARIN SODIUM
     Indication: Embolism venous
     Dosage: 40 MILLIGRAM, QD
     Route: 058
     Dates: start: 20251022, end: 20251028
  24. THIAMINE [Concomitant]
     Active Substance: THIAMINE
     Indication: Supplementation therapy
     Dosage: 200 MG, QD
     Route: 048
     Dates: start: 20251023
  25. VITAMINS NOS [Concomitant]
     Active Substance: VITAMINS
     Indication: Supplementation therapy
     Dosage: 1 DAILY
     Route: 048
     Dates: start: 20251023
  26. TIOTROPIUM [Concomitant]
     Active Substance: TIOTROPIUM
     Indication: Dyspnoea
     Dosage: 2 DAILY
     Route: 055
     Dates: start: 20251023
  27. SODIUM CHLORIDE [Concomitant]
     Active Substance: SODIUM CHLORIDE
     Indication: Hyponatraemia
     Dosage: 500 MILLILITER, ONCE
     Route: 042
     Dates: start: 20251022, end: 20251022
  28. SODIUM CHLORIDE [Concomitant]
     Active Substance: SODIUM CHLORIDE
     Indication: Hyponatraemia
     Dosage: 15 MILLIMOLE, OTHER
     Route: 042
     Dates: start: 20251023, end: 20251026
  29. CEFTRIAXONE SODIUM [Concomitant]
     Active Substance: CEFTRIAXONE SODIUM
     Indication: Infection
     Dosage: 2000 MG, QD
     Route: 042
     Dates: start: 20251022, end: 20251026
  30. POLYETHYLENE GLYCOLS [Concomitant]
     Active Substance: POLYETHYLENE GLYCOLS
     Indication: Constipation
     Dosage: 17 G, QD
     Route: 050
     Dates: start: 20250916, end: 20251103
  31. POLYETHYLENE GLYCOLS [Concomitant]
     Active Substance: POLYETHYLENE GLYCOLS
     Indication: Constipation
     Dosage: 17 G, QD
     Route: 048
     Dates: start: 20251022
  32. AZITHROMYCIN [Concomitant]
     Active Substance: AZITHROMYCIN
     Indication: Infection
     Dosage: 500 MILLIGRAM, QD
     Route: 048
     Dates: start: 20251022, end: 20251022
  33. AZITHROMYCIN [Concomitant]
     Active Substance: AZITHROMYCIN
     Indication: Infection
     Dosage: 500 MILLIGRAM, QD
     Route: 048
     Dates: start: 20250916, end: 20250918
  34. NYSTATIN [Concomitant]
     Active Substance: NYSTATIN
     Indication: Oral candidiasis
     Dosage: 5 MILLIGRAM, QID
     Route: 048
     Dates: start: 20251022
  35. CALCIUM CARBONATE [Concomitant]
     Active Substance: CALCIUM CARBONATE
     Indication: Product used for unknown indication
     Dosage: 500 MILLIGRAM, BID
     Route: 048
     Dates: start: 20251025, end: 20251025
  36. POTASSIUM PHOSPHATE [Concomitant]
     Active Substance: POTASSIUM PHOSPHATE
     Indication: Product used for unknown indication
     Dosage: 15 MILLIMOLE, ONCE
     Route: 042
     Dates: start: 20251027, end: 20251027
  37. PREDNISONE [Concomitant]
     Active Substance: PREDNISONE
     Indication: Bronchitis
     Dosage: 50 MG, QD
     Route: 048
     Dates: start: 20251022, end: 20251025

REACTIONS (1)
  - Immune-mediated lung disease [Fatal]

NARRATIVE: CASE EVENT DATE: 20251022
